FAERS Safety Report 23309461 (Version 1)
Quarter: 2023Q4

REPORT INFORMATION
  Report Type: Spontaneous
  Country: GB (occurrence: GB)
  Receive Date: 20231218
  Receipt Date: 20231218
  Transmission Date: 20240110
  Serious: Yes (Disabling)
  Sender: FDA-Public Use
  Company Number: GB-MHRA-TPP20525520C3626091YC1700829450933

PATIENT
  Age: 56 Year
  Sex: Female
  Weight: 72 kg

DRUGS (16)
  1. MONTELUKAST [Suspect]
     Active Substance: MONTELUKAST SODIUM
     Indication: Ill-defined disorder
     Dosage: 10 MILLIGRAM, ONCE A DAY (AT NIGHT)
     Route: 048
     Dates: start: 20231013
  2. MONTELUKAST [Suspect]
     Active Substance: MONTELUKAST SODIUM
     Dosage: UNK
     Route: 065
     Dates: start: 20231124
  3. BECLOMETHASONE DIPROPIONATE [Concomitant]
     Active Substance: BECLOMETHASONE DIPROPIONATE
     Indication: Ill-defined disorder
     Dosage: 4 DOSAGE FORM (TWO APPLICATIONS OF SPRAY IN BOTH NOSTRILS TWIC...)
     Route: 045
     Dates: start: 20231108, end: 20231109
  4. CLARITHROMYCIN [Concomitant]
     Active Substance: CLARITHROMYCIN
     Indication: Ill-defined disorder
     Dosage: 1 DOSAGE FORM, TWO TIMES A DAY (FOR 14 DAYS)
     Route: 065
     Dates: start: 20231110
  5. DOXYCYCLINE [Concomitant]
     Active Substance: DOXYCYCLINE
     Indication: Ill-defined disorder
     Dosage: TWO TABLETS NOW, THEN ONE TABLET DAILY FOR NEXT FOUR DAYS
     Route: 048
     Dates: start: 20231009, end: 20231014
  6. ESTRADIOL [Concomitant]
     Active Substance: ESTRADIOL
     Indication: Ill-defined disorder
     Dosage: 1 DOSAGE FORM, 2XW (APPLY)
     Route: 061
     Dates: start: 20230629
  7. FLUTICASONE FUROATE [Concomitant]
     Active Substance: FLUTICASONE FUROATE
     Indication: Ill-defined disorder
     Dosage: 4 DOSAGE FORM, ONCE A DAY (TWO SPRAYS ONCE DAILY TO EACH NOSTRIL. ONCE UND...)
     Route: 045
     Dates: start: 20231103
  8. BECLOMETHASONE\FORMOTEROL [Concomitant]
     Active Substance: BECLOMETHASONE\FORMOTEROL
     Indication: Ill-defined disorder
     Dosage: 2 DOSAGE FORM, TWO TIMES A DAY (TWO PUFFS TO BE INHALED TWICE A DAY)
     Route: 055
     Dates: start: 20230629
  9. MONTELUKAST [Concomitant]
     Active Substance: MONTELUKAST SODIUM
     Indication: Ill-defined disorder
     Dosage: 1 DOSAGE FORM, ONCE A DAY (TAKE ONE AT NIGHT)
     Route: 065
     Dates: start: 20231013
  10. NAPROXEN [Concomitant]
     Active Substance: NAPROXEN
     Indication: Ill-defined disorder
     Dosage: 1 DOSAGE FORM, TWO TIMES A DAY (ONE TO BE TAKEN TWICE A DAY)
     Route: 065
     Dates: start: 20231123
  11. OMEPRAZOLE [Concomitant]
     Active Substance: OMEPRAZOLE
     Indication: Ill-defined disorder
     Dosage: 1 DOSAGE FORM, TWO TIMES A DAY (ONE CAPSULE TO BE TAKEN TWICE A DAY)
     Route: 048
     Dates: start: 20230629
  12. PREDNISOLONE [Concomitant]
     Active Substance: PREDNISOLONE
     Indication: Ill-defined disorder
     Dosage: 8 DOSAGE FORM, ONCE A DAY (FOR 5 DAYS)
     Route: 048
     Dates: start: 20231030, end: 20231102
  13. PROMETHAZINE HYDROCHLORIDE [Concomitant]
     Active Substance: PROMETHAZINE HYDROCHLORIDE
     Indication: Ill-defined disorder
     Dosage: ONE OR TWO TABLETS TO BE TAKEN AT NIGHT
     Route: 048
     Dates: start: 20230629
  14. ALBUTEROL [Concomitant]
     Active Substance: ALBUTEROL
     Indication: Ill-defined disorder
     Dosage: 2 DOSAGE FORM (INHALE 2 DOSES AS NEEDED)
     Route: 055
     Dates: start: 20230629
  15. SERTRALINE [Concomitant]
     Active Substance: SERTRALINE HYDROCHLORIDE
     Indication: Ill-defined disorder
     Dosage: 1 DOSAGE FORM, ONCE A DAY (TAKE ONE DAILY)
     Route: 065
     Dates: start: 20230629
  16. THIAMINE [Concomitant]
     Active Substance: THIAMINE
     Indication: Ill-defined disorder
     Dosage: 1 DOSAGE FORM, 3 TIMES A DAY (ONE TABLET TO BE TAKEN THREE TIMES A DAY)
     Route: 048
     Dates: start: 20230629

REACTIONS (6)
  - Akathisia [Unknown]
  - Dry mouth [Unknown]
  - Dysgraphia [Unknown]
  - Mouth ulceration [Unknown]
  - Movement disorder [Unknown]
  - Malaise [Unknown]

NARRATIVE: CASE EVENT DATE: 20231124
